FAERS Safety Report 21535003 (Version 3)
Quarter: 2022Q4

REPORT INFORMATION
  Report Type: Spontaneous
  Country: IE (occurrence: IE)
  Receive Date: 20221101
  Receipt Date: 20221101
  Transmission Date: 20230113
  Serious: Yes (Other)
  Sender: FDA-Public Use
  Company Number: IE-PFIZER INC-PV202200085179

PATIENT
  Age: 62 Year
  Sex: Male

DRUGS (2)
  1. ZOLEDRONIC ACID [Suspect]
     Active Substance: ZOLEDRONIC ACID
     Indication: Hypercalcaemia
     Dosage: 4 MG
     Route: 042
  2. MINERALS [Suspect]
     Active Substance: MINERALS
     Indication: Hypercalcaemia
     Dosage: UNK
     Route: 042

REACTIONS (11)
  - Cellulitis orbital [Recovered/Resolved]
  - Exophthalmos [Unknown]
  - Ophthalmoplegia [Unknown]
  - Arthralgia [Unknown]
  - Headache [Unknown]
  - Pyrexia [Unknown]
  - Periorbital oedema [Unknown]
  - Conjunctival oedema [Unknown]
  - Visual acuity reduced [Recovered/Resolved]
  - C-reactive protein increased [Unknown]
  - Off label use [Unknown]
